FAERS Safety Report 20066449 (Version 1)
Quarter: 2021Q4

REPORT INFORMATION
  Report Type: Other
  Country: CZ (occurrence: CZ)
  Receive Date: 20211115
  Receipt Date: 20211115
  Transmission Date: 20220303
  Serious: Yes (Life-Threatening, Other)
  Sender: FDA-Public Use
  Company Number: CZ-CELLTRION INC.-2021CZ015203

PATIENT

DRUGS (1)
  1. INFLIXIMAB [Suspect]
     Active Substance: INFLIXIMAB
     Indication: Psoriatic arthropathy
     Dosage: 500 MG (SECOND INFUSION OF REMSIMA ADMINISTERED, ASSOCIATED MEDICATION: DITHIADEN 1X1 AND MEDROL 16M
     Route: 042
     Dates: start: 20210920, end: 20211006

REACTIONS (2)
  - Anaphylactic reaction [Recovered/Resolved]
  - Overdose [Unknown]

NARRATIVE: CASE EVENT DATE: 20211006
